FAERS Safety Report 26171511 (Version 1)
Quarter: 2025Q4

REPORT INFORMATION
  Report Type: Report from Study
  Country: EU (occurrence: EU)
  Receive Date: 20251217
  Receipt Date: 20251217
  Transmission Date: 20260118
  Serious: Yes (Hospitalization, Other)
  Sender: BAYER HEALTHCARE PHARMACEUTICALS INC.
  Company Number: EU-BAYER-2025A105705

PATIENT
  Age: 76 Year
  Sex: Female

DRUGS (1)
  1. BETAFERON [Suspect]
     Active Substance: INTERFERON BETA-1B
     Indication: Multiple sclerosis
     Dosage: 250 ?G, QOD
     Route: 058
     Dates: start: 20120101

REACTIONS (6)
  - Colon cancer [Not Recovered/Not Resolved]
  - Diarrhoea [None]
  - COVID-19 pneumonia [None]
  - Iron deficiency [Unknown]
  - Gait disturbance [Unknown]
  - Bladder catheterisation [None]

NARRATIVE: CASE EVENT DATE: 20250702
